FAERS Safety Report 8360898-1 (Version None)
Quarter: 2012Q2

REPORT INFORMATION
  Report Type: 
  Country: None (occurrence: None)
  Receive Date: 20120515
  Receipt Date: 20120509
  Transmission Date: 20120825
  Serious: Yes (Other)
  Sender: FDA-Public Use
  Company Number: US-ROCHE-803983

PATIENT
  Sex: Female
  Weight: 101.7 kg

DRUGS (4)
  1. RIBAVIRIN [Suspect]
     Indication: HEPATITIS C
     Route: 048
     Dates: start: 20110518, end: 20110610
  2. PEGASYS [Suspect]
     Indication: HEPATITIS C
     Route: 058
     Dates: start: 20110518, end: 20110610
  3. RIBAVIRIN [Suspect]
     Dates: start: 20111212
  4. PEGASYS [Suspect]

REACTIONS (3)
  - LOCAL SWELLING [None]
  - SWELLING FACE [None]
  - DYSPNOEA [None]
